FAERS Safety Report 21978066 (Version 1)
Quarter: 2023Q1

REPORT INFORMATION
  Report Type: Spontaneous
  Country: JP (occurrence: JP)
  Receive Date: 20230210
  Receipt Date: 20230210
  Transmission Date: 20230418
  Serious: Yes (Life-Threatening, Other)
  Sender: FDA-Public Use
  Company Number: JP-ASTELLAS-2023JP001631

PATIENT
  Age: 64 Year
  Sex: Female

DRUGS (2)
  1. TACROLIMUS [Suspect]
     Active Substance: TACROLIMUS
     Indication: Rheumatoid arthritis
     Dosage: UNK UNK, UNKNOWN FREQ.
     Route: 048
  2. PREDNISOLONE [Concomitant]
     Active Substance: PREDNISOLONE
     Indication: Rheumatoid arthritis
     Dosage: 5 MG/DAY, UNKNOWN FREQ.
     Route: 048

REACTIONS (8)
  - Cholangitis [Unknown]
  - Portal vein phlebitis [Unknown]
  - Portal vein thrombosis [Unknown]
  - Cholangitis sclerosing [Unknown]
  - Cholangitis [Unknown]
  - Septic shock [Unknown]
  - Systemic candida [Unknown]
  - Emphysematous cholecystitis [Unknown]
